FAERS Safety Report 8537661-1 (Version None)
Quarter: 2012Q3

REPORT INFORMATION
  Report Type: 
  Country: None (occurrence: None)
  Receive Date: 20120725
  Receipt Date: 20120720
  Transmission Date: 20120928
  Serious: Yes (Other)
  Sender: FDA-Public Use
  Company Number: PHHO2012JP010099

PATIENT
  Sex: Male

DRUGS (8)
  1. GENTAMICIN SULFATE [Suspect]
     Indication: FOLLICULITIS
     Dates: start: 20080910
  2. TASIGNA [Suspect]
     Indication: CHRONIC MYELOID LEUKAEMIA
     Route: 048
     Dates: start: 20080417
  3. POSTERISAN [Suspect]
     Indication: HAEMORRHOIDS
     Dates: start: 20090601
  4. LOXONIN [Suspect]
     Indication: HEADACHE
     Route: 048
     Dates: start: 20080422
  5. EVIPROSTAT [Suspect]
     Indication: BENIGN PROSTATIC HYPERPLASIA
     Dosage: 3 DF, UNK
     Route: 048
     Dates: start: 20091128
  6. TASIGNA [Suspect]
     Dosage: 600 MG, UNK
     Route: 048
     Dates: start: 20080422
  7. FLIVAS [Suspect]
     Indication: BENIGN PROSTATIC HYPERPLASIA
     Dosage: 75 MG, UNK
     Route: 048
     Dates: start: 20091128
  8. PREDNISOLONE [Suspect]
     Dates: start: 20120606

REACTIONS (2)
  - NEOPLASM MALIGNANT [None]
  - PROSTATE CANCER [None]
